FAERS Safety Report 16322579 (Version 1)
Quarter: 2019Q2

REPORT INFORMATION
  Report Type: Spontaneous
  Country: DE (occurrence: DE)
  Receive Date: 20190516
  Receipt Date: 20190516
  Transmission Date: 20190711
  Serious: Yes (Other)
  Sender: FDA-Public Use
  Company Number: DE-009507513-1905DEU006783

PATIENT
  Sex: Female
  Weight: 94 kg

DRUGS (11)
  1. METOPROLOL RETARD [Suspect]
     Active Substance: METOPROLOL TARTRATE
     Indication: BLOOD PRESSURE FLUCTUATION
     Dosage: UNK
     Route: 065
  2. METOPROLOL RETARD [Suspect]
     Active Substance: METOPROLOL TARTRATE
     Dosage: UNK
     Route: 065
     Dates: start: 201808
  3. BROMAZEPAM [Suspect]
     Active Substance: BROMAZEPAM
     Indication: PRODUCT USED FOR UNKNOWN INDICATION
     Dosage: UNK
     Route: 065
     Dates: start: 201808
  4. EUTHYROX [Suspect]
     Active Substance: LEVOTHYROXINE SODIUM
     Indication: AUTOIMMUNE THYROIDITIS
     Dosage: 112 MICROGRAM
     Route: 065
     Dates: start: 2011
  5. CANDESARTAN ZENTIVA [Suspect]
     Active Substance: CANDESARTAN CILEXETIL
     Dosage: 8 MILLIGRAM
     Route: 065
     Dates: start: 201808
  6. SIMVASTATIN. [Suspect]
     Active Substance: SIMVASTATIN
     Indication: PRODUCT USED FOR UNKNOWN INDICATION
     Dosage: 20 MILLIGRAM
     Route: 065
     Dates: start: 201808
  7. CANDESARTAN ZENTIVA [Suspect]
     Active Substance: CANDESARTAN CILEXETIL
     Indication: BLOOD PRESSURE FLUCTUATION
     Dosage: UNK
     Route: 065
  8. ZOLPIDEM AL [Suspect]
     Active Substance: ZOLPIDEM TARTRATE
     Indication: PRODUCT USED FOR UNKNOWN INDICATION
     Dosage: 5 MILLIGRAM
     Route: 065
     Dates: start: 201808
  9. EUTHYROX [Suspect]
     Active Substance: LEVOTHYROXINE SODIUM
     Indication: HYPOTHYROIDISM
  10. AMLODIPINE BESYLATE. [Suspect]
     Active Substance: AMLODIPINE BESYLATE
     Dosage: 5 MILLIGRAM
     Route: 065
     Dates: start: 201808
  11. AMLODIPINE BESYLATE. [Suspect]
     Active Substance: AMLODIPINE BESYLATE
     Indication: BLOOD PRESSURE FLUCTUATION
     Dosage: UNK
     Route: 065

REACTIONS (7)
  - Confusional state [Recovering/Resolving]
  - Arrhythmia [Recovering/Resolving]
  - Blepharospasm [Recovering/Resolving]
  - Vision blurred [Recovering/Resolving]
  - Feeling hot [Recovering/Resolving]
  - Disturbance in attention [Recovering/Resolving]
  - General physical health deterioration [Recovering/Resolving]
